FAERS Safety Report 6744438-6 (Version None)
Quarter: 2010Q2

REPORT INFORMATION
  Report Type: 
  Country: None (occurrence: None)
  Receive Date: 20100527
  Receipt Date: 20100520
  Transmission Date: 20101027
  Serious: Yes (Other)
  Sender: FDA-Public Use
  Company Number: US-PFIZER INC-2010064426

PATIENT
  Sex: Female

DRUGS (1)
  1. DEPO-SUBQ PROVERA 104 [Suspect]
     Dosage: UNK

REACTIONS (2)
  - INJECTION SITE ATROPHY [None]
  - INJECTION SITE REACTION [None]
